FAERS Safety Report 17170595 (Version 3)
Quarter: 2020Q1

REPORT INFORMATION
  Report Type: Spontaneous
  Country: US (occurrence: US)
  Receive Date: 20191218
  Receipt Date: 20200124
  Transmission Date: 20200409
  Serious: No
  Sender: FDA-Public Use
  Company Number: US-ACTELION-A-NJ2019-199200

PATIENT
  Age: 49 Year
  Sex: Male

DRUGS (10)
  1. SILDENAFIL. [Concomitant]
     Active Substance: SILDENAFIL
     Dosage: 60 MG, TID
     Dates: start: 2016
  2. WARFARIN [Concomitant]
     Active Substance: WARFARIN
     Dosage: 7.5 MG, QD
  3. OPSUMIT [Suspect]
     Active Substance: MACITENTAN
     Dosage: UNK, QD
     Route: 048
     Dates: start: 201912, end: 201912
  4. ATORVASTATIN [Concomitant]
     Active Substance: ATORVASTATIN
     Dosage: 10 MG, QD
     Dates: start: 2018
  5. RENVELA [Concomitant]
     Active Substance: SEVELAMER CARBONATE
     Dosage: 800 MG, TID WITH MEALS
     Dates: start: 2011
  6. RENVELA [Concomitant]
     Active Substance: SEVELAMER CARBONATE
     Dosage: 800 MG, QD WITH SNACK
  7. OPSUMIT [Suspect]
     Active Substance: MACITENTAN
     Indication: PULMONARY ARTERIAL HYPERTENSION
     Dosage: 10 MG, QD
     Route: 048
     Dates: start: 20191129
  8. SILDENAFIL. [Concomitant]
     Active Substance: SILDENAFIL
     Dosage: 20 MG, TID
     Dates: start: 2018
  9. MIDODRINE [Concomitant]
     Active Substance: MIDODRINE
     Dosage: 2.5 MG, EVERY 6 HOURS QD
     Dates: start: 2018
  10. WARFARIN [Concomitant]
     Active Substance: WARFARIN
     Dosage: 5 MG, QD
     Dates: start: 2013

REACTIONS (6)
  - Urticaria [Recovered/Resolved]
  - Peripheral swelling [Not Recovered/Not Resolved]
  - Rash maculo-papular [Unknown]
  - Pruritus [Recovered/Resolved]
  - Pulmonary oedema [Unknown]
  - Hypersensitivity [Unknown]

NARRATIVE: CASE EVENT DATE: 20191129
